FAERS Safety Report 7512716-9 (Version None)
Quarter: 2011Q2

REPORT INFORMATION
  Report Type: 
  Country: None (occurrence: None)
  Receive Date: 20110520
  Receipt Date: 20110511
  Transmission Date: 20111010
  Serious: Yes (Death)
  Sender: FDA-Public Use
  Company Number: JPI-P-014839

PATIENT
  Age: 72 Year
  Sex: Male

DRUGS (7)
  1. XYREM [Suspect]
     Indication: INSOMNIA
     Dosage: 6 GM (3 GM, 2 IN 1 D), ORAL 9 GM (4.5 GM, 2 IN 1 D), ORAL
     Route: 048
     Dates: start: 20090205, end: 20101105
  2. XYREM [Suspect]
     Indication: DELAYED SLEEP PHASE
     Dosage: 6 GM (3 GM, 2 IN 1 D), ORAL 9 GM (4.5 GM, 2 IN 1 D), ORAL
     Route: 048
     Dates: start: 20090205, end: 20101105
  3. XYREM [Suspect]
     Indication: INSOMNIA
     Dosage: 6 GM (3 GM, 2 IN 1 D), ORAL 9 GM (4.5 GM, 2 IN 1 D), ORAL
     Route: 048
     Dates: start: 20090106, end: 20090204
  4. XYREM [Suspect]
     Indication: DELAYED SLEEP PHASE
     Dosage: 6 GM (3 GM, 2 IN 1 D), ORAL 9 GM (4.5 GM, 2 IN 1 D), ORAL
     Route: 048
     Dates: start: 20090106, end: 20090204
  5. DIAZEPAM [Concomitant]
  6. HYDROCODONE BITARTRATE [Concomitant]
  7. UNSPECIFIED MEDICATION FOR LOWERING CHOLESTEROL LEVEL [Concomitant]

REACTIONS (1)
  - DEATH [None]
